FAERS Safety Report 4387619-1 (Version None)
Quarter: 2004Q2

REPORT INFORMATION
  Report Type: 
  Country: None (occurrence: None)
  Receive Date: 20040630
  Receipt Date: 20040520
  Transmission Date: 20050107
  Serious: No
  Sender: FDA-Public Use
  Company Number: US-GLAXOSMITHKLINE-A0511594A

PATIENT
  Age: 46 Year
  Sex: Male
  Weight: 87.7 kg

DRUGS (7)
  1. ADVAIR HFA [Suspect]
     Indication: ASTHMA
     Dosage: 500MCG TWICE PER DAY
     Route: 055
     Dates: start: 20040303
  2. ALBUTEROL [Concomitant]
     Indication: ASTHMA
     Dosage: 2PUFF AS REQUIRED
     Route: 065
  3. FLONASE [Concomitant]
     Indication: ASTHMA
     Dosage: 2SPR PER DAY
     Route: 045
  4. PATANOL [Concomitant]
     Route: 047
  5. NASALCROM [Concomitant]
     Route: 065
  6. ALLEGRA [Concomitant]
     Dosage: 180MG PER DAY
     Route: 048
  7. CLARITIN [Concomitant]
     Dosage: 10MG PER DAY
     Route: 048

REACTIONS (1)
  - FUNGAL INFECTION [None]
